FAERS Safety Report 9130765 (Version 3)
Quarter: 2013Q2

REPORT INFORMATION
  Report Type: Spontaneous
  Country: IE (occurrence: IE)
  Receive Date: 20130301
  Receipt Date: 20130418
  Transmission Date: 20140414
  Serious: Yes (Hospitalization, Other)
  Sender: FDA-Public Use
  Company Number: PHFR2013IE001240

PATIENT
  Age: 61 Year
  Sex: Female

DRUGS (8)
  1. CLOZARIL [Suspect]
     Indication: SCHIZOPHRENIA
     Dosage: UNK
     Route: 048
     Dates: start: 20121121
  2. CLOZARIL [Suspect]
     Dosage: 125 MG, (50 MG AT MORNING AND 75 MG AT NIGHT)
     Route: 048
  3. QUETIAPINE [Concomitant]
     Dosage: 150 MG, UNK
     Route: 048
  4. LEVOTHYROXINE [Concomitant]
     Dosage: 100 MG, UNK
     Route: 048
  5. EFFEXOR [Concomitant]
     Dosage: 150 MG, UNK
     Route: 048
  6. LEXAPRO [Concomitant]
     Dosage: 5 MG, UNK
     Route: 048
  7. ACICLOVIR [Concomitant]
     Dosage: UNK
  8. FLUCLOXACILLIN [Concomitant]
     Dosage: UNK

REACTIONS (4)
  - Oral herpes [Recovered/Resolved]
  - Neutropenia [Recovered/Resolved]
  - Neutrophil count decreased [Recovered/Resolved]
  - White blood cell count decreased [Recovered/Resolved]
